FAERS Safety Report 7247560-3 (Version None)
Quarter: 2011Q1

REPORT INFORMATION
  Report Type: 
  Country: None (occurrence: None)
  Receive Date: 20110127
  Receipt Date: 20110107
  Transmission Date: 20110831
  Serious: No
  Sender: FDA-Public Use
  Company Number: GB-ROCHE-749294

PATIENT
  Sex: Female
  Weight: 35.6 kg

DRUGS (7)
  1. TAMIFLU [Suspect]
     Route: 048
     Dates: start: 20101218, end: 20101220
  2. TAMIFLU [Suspect]
     Route: 048
     Dates: start: 20101221, end: 20101223
  3. SODIUM CHLORIDE [Concomitant]
     Dosage: NEBULISER
     Dates: start: 20101218, end: 20101230
  4. CEFUROXIME [Concomitant]
     Route: 042
     Dates: start: 20101217, end: 20101223
  5. ALBUTEROL [Concomitant]
     Indication: WHEEZING
     Dosage: NEBULISER
     Dates: start: 20101218, end: 20101230
  6. PARACETAMOL [Concomitant]
     Dosage: ALSO TAKEN INTRAVENOUSLY
     Route: 048
     Dates: start: 20101217
  7. VALPROATE SODIUM [Concomitant]
     Indication: EPILEPSY
     Dosage: 480MG MORNING, 520 MG NOCTE
     Route: 048

REACTIONS (2)
  - NO ADVERSE EVENT [None]
  - ACCIDENTAL OVERDOSE [None]
